FAERS Safety Report 5212254-2 (Version None)
Quarter: 2007Q1

REPORT INFORMATION
  Report Type: 
  Country: None (occurrence: None)
  Receive Date: 20070118
  Receipt Date: 20070115
  Transmission Date: 20070707
  Serious: Yes (Death)
  Sender: FDA-Public Use
  Company Number: MW-BOEHRINGER INGELHEIM PHARMACEUTICALS, INC.-2006-BP-13739BP

PATIENT
  Age: 50 Year
  Sex: Male
  Weight: 48 kg

DRUGS (6)
  1. VIRAMUNE [Suspect]
     Indication: HIV INFECTION
     Route: 048
     Dates: start: 20061103, end: 20061113
  2. VIRAMUNE [Suspect]
     Route: 048
     Dates: start: 20061020, end: 20061102
  3. EMTRICITABINE [Suspect]
     Indication: HIV INFECTION
     Route: 048
     Dates: start: 20061006, end: 20061113
  4. TENOFOVIR DF [Suspect]
     Indication: HIV INFECTION
     Route: 048
     Dates: start: 20061006, end: 20061113
  5. FERROUS SULFATE TAB [Concomitant]
  6. EFAVIRENZ [Concomitant]
     Indication: HIV INFECTION
     Route: 048
     Dates: start: 20061006, end: 20061010

REACTIONS (4)
  - BLISTER [None]
  - CHEILITIS [None]
  - SKIN REACTION [None]
  - STEVENS-JOHNSON SYNDROME [None]
